FAERS Safety Report 5200923-X (Version None)
Quarter: 2007Q1

REPORT INFORMATION
  Report Type: 
  Country: None (occurrence: None)
  Receive Date: 20070103
  Receipt Date: 20061214
  Transmission Date: 20070707
  Serious: Yes (Hospitalization)
  Sender: FDA-Public Use
  Company Number: 2006SP005013

PATIENT
  Age: 52 Year
  Sex: Female
  Weight: 38 kg

DRUGS (14)
  1. TEMOZOLOMIDE (S-P) (TEMOZOLOMIDE) [Suspect]
     Indication: METASTASES TO CENTRAL NERVOUS SYSTEM
     Dosage: 110 MG, QD; PO
     Route: 048
     Dates: start: 20060925, end: 20061014
  2. HALDOL SOLUTAB [Suspect]
     Indication: DRUG USE FOR UNKNOWN INDICATION
  3. FORTECORTIN (DEXAMETHASONE) [Suspect]
     Indication: DRUG USE FOR UNKNOWN INDICATION
     Dates: start: 20060913
  4. IPRATROPIUM BROMIDE [Concomitant]
  5. SALBUTAMOL [Concomitant]
  6. ACETYLSALICYLATE [Concomitant]
  7. PANTOPRAZOLE SODIUM [Concomitant]
  8. DICLOFENAC SODIUM [Concomitant]
  9. ALPRAZOLAM [Concomitant]
  10. METOCLOPRAMID [Concomitant]
  11. BISACODYL [Concomitant]
  12. NOZINAN [Concomitant]
  13. VALTREX [Concomitant]
  14. RADIATION THERAPY [Concomitant]

REACTIONS (6)
  - AGITATION [None]
  - CONFUSIONAL STATE [None]
  - DYSKINESIA [None]
  - MEMORY IMPAIRMENT [None]
  - PERSONALITY CHANGE [None]
  - TREMOR [None]
